FAERS Safety Report 8539715-2 (Version None)
Quarter: 2012Q3

REPORT INFORMATION
  Report Type: 
  Country: None (occurrence: None)
  Receive Date: 20120726
  Receipt Date: 20111213
  Transmission Date: 20120928
  Serious: No
  Sender: FDA-Public Use
  Company Number: US-ASTRAZENECA-2006UW20079

PATIENT
  Age: 65 Year
  Sex: Female

DRUGS (15)
  1. LEVOXYL [Concomitant]
     Route: 048
     Dates: start: 19960613
  2. CLONAZEPAM [Concomitant]
     Route: 048
     Dates: start: 19990804
  3. MIRAPEX [Concomitant]
     Dosage: 1/2 T AT NIGHT
     Route: 048
     Dates: start: 19990812
  4. SERZONE [Concomitant]
     Dosage: 1/2 T BID
     Route: 048
     Dates: start: 19960702
  5. TOPAMAX [Concomitant]
     Route: 048
     Dates: start: 20020807
  6. XANAX [Concomitant]
     Route: 048
     Dates: start: 20020807
  7. SEROQUEL [Suspect]
     Dosage: 25 MG, 50 MG, 75 MG AND 100MG
     Route: 048
     Dates: start: 20011216, end: 20060713
  8. ZYPREXA [Suspect]
     Dosage: 25 MG, 100 MG
     Route: 048
  9. SEROQUEL [Suspect]
     Indication: SLEEP DISORDER
     Route: 048
     Dates: start: 19990620
  10. ZYPREXA [Suspect]
     Route: 048
     Dates: start: 19990331
  11. FLURAZEPAM [Concomitant]
     Route: 048
     Dates: start: 19960702
  12. AMBIEN [Concomitant]
     Route: 048
     Dates: start: 20020807
  13. VIVACTYL [Concomitant]
     Route: 048
     Dates: start: 20020807
  14. KLONOPIN [Concomitant]
     Route: 048
     Dates: start: 19990625
  15. RISPERDAL [Suspect]
     Route: 048
     Dates: start: 19990613

REACTIONS (3)
  - HEADACHE [None]
  - MEMORY IMPAIRMENT [None]
  - TYPE 2 DIABETES MELLITUS [None]
